FAERS Safety Report 6207260-5 (Version None)
Quarter: 2009Q2

REPORT INFORMATION
  Report Type: 
  Country: None (occurrence: None)
  Receive Date: 20090522
  Receipt Date: 20090211
  Transmission Date: 20091009
  Serious: No
  Sender: FDA-Public Use
  Company Number: 8042969

PATIENT
  Age: 63 Year
  Sex: Female
  Weight: 57.2 kg

DRUGS (2)
  1. CIMZIA [Suspect]
     Indication: CROHN'S DISEASE
     Dosage: 400 MG SC
     Route: 058
     Dates: start: 20081001
  2. PREDNISONE [Concomitant]

REACTIONS (8)
  - ABDOMINAL PAIN [None]
  - CHEST DISCOMFORT [None]
  - DIARRHOEA [None]
  - DRUG INEFFECTIVE [None]
  - FLATULENCE [None]
  - NAUSEA [None]
  - PYREXIA [None]
  - VOMITING [None]
